FAERS Safety Report 5369900-2 (Version None)
Quarter: 2007Q2

REPORT INFORMATION
  Report Type: 
  Country: None (occurrence: None)
  Receive Date: 20070621
  Receipt Date: 20070608
  Transmission Date: 20071010
  Serious: Yes (Death, Life-Threatening, Other)
  Sender: FDA-Public Use
  Company Number: 07062145

PATIENT
  Age: 30 Year
  Sex: Male

DRUGS (2)
  1. CITALOPRAM HYDROBROMIDE [Suspect]
  2. DINITROPHENOL (DNP) [Suspect]

REACTIONS (3)
  - DRUG TOXICITY [None]
  - PULMONARY OEDEMA [None]
  - VISCERAL CONGESTION [None]
